FAERS Safety Report 5193003-3 (Version None)
Quarter: 2006Q4

REPORT INFORMATION
  Report Type: 
  Country: None (occurrence: None)
  Receive Date: 20061228
  Receipt Date: 20060213
  Transmission Date: 20070319
  Serious: No
  Sender: FDA-Public Use
  Company Number: US-GLAXOSMITHKLINE-A0593473A

PATIENT
  Age: 76 Year
  Sex: Male

DRUGS (5)
  1. AVODART [Suspect]
     Indication: BENIGN PROSTATIC HYPERPLASIA
     Dosage: .5MG PER DAY
     Route: 048
     Dates: start: 20060101, end: 20060106
  2. ZOCOR [Concomitant]
  3. XALATAN [Concomitant]
  4. FLONASE [Concomitant]
  5. BLOOD PRESSURE MEDICATION [Concomitant]

REACTIONS (5)
  - GAIT DISTURBANCE [None]
  - MUSCLE INJURY [None]
  - MUSCLE RIGIDITY [None]
  - MUSCULOSKELETAL STIFFNESS [None]
  - PAIN [None]
